FAERS Safety Report 5941262-9 (Version None)
Quarter: 2008Q4

REPORT INFORMATION
  Report Type: 
  Country: None (occurrence: None)
  Receive Date: 20081103
  Receipt Date: 20081103
  Transmission Date: 20090506
  Serious: Yes (Other)
  Sender: FDA-Public Use
  Company Number: None

PATIENT
  Age: 55 Year
  Sex: Female
  Weight: 95.2554 kg

DRUGS (2)
  1. TRAMADOL HCL [Suspect]
     Indication: PAIN
     Dosage: 100 MG ONCE A DAY PO
     Route: 048
     Dates: start: 20081018, end: 20081019
  2. METRONIDAZOLE [Suspect]
     Indication: INFECTED SKIN ULCER
     Dosage: 500 MG THREE TIMES A DAY PO
     Route: 048
     Dates: start: 20081020, end: 20081020

REACTIONS (5)
  - DIZZINESS [None]
  - DRUG INTERACTION [None]
  - MALAISE [None]
  - PSYCHOTIC BEHAVIOUR [None]
  - SYNCOPE [None]
